FAERS Safety Report 6138458-2 (Version None)
Quarter: 2009Q1

REPORT INFORMATION
  Report Type: 
  Country: None (occurrence: None)
  Receive Date: 20090331
  Receipt Date: 20090320
  Transmission Date: 20090719
  Serious: Yes (Other)
  Sender: FDA-Public Use
  Company Number: -BAXTER-2009BH004399

PATIENT
  Age: 73 Year
  Sex: Male
  Weight: 56 kg

DRUGS (17)
  1. OLICLINOMEL [Suspect]
     Indication: MALNUTRITION
     Route: 042
     Dates: start: 20090101, end: 20090316
  2. OLICLINOMEL [Suspect]
     Indication: HYPOALBUMINAEMIA
     Route: 042
     Dates: start: 20090101, end: 20090316
  3. OLICLINOMEL [Suspect]
     Route: 042
     Dates: start: 20090318
  4. OLICLINOMEL [Suspect]
     Route: 042
     Dates: start: 20090318
  5. OLICLINOMEL [Suspect]
     Route: 042
     Dates: start: 20090320
  6. OLICLINOMEL [Suspect]
     Route: 042
     Dates: start: 20090320
  7. CERNEVIT-12 [Suspect]
     Indication: MALNUTRITION
  8. ATARAX [Concomitant]
  9. DEPAKENE [Concomitant]
  10. MOPRAL [Concomitant]
  11. TRIATEC [Concomitant]
  12. ZYLORIC ^FAES^ [Concomitant]
  13. FRAXIPARINE /FRA/ [Concomitant]
     Indication: DIALYSIS
  14. FOSRENOL [Concomitant]
  15. KAYEXALATE [Concomitant]
  16. LEPTICUR [Concomitant]
  17. LOXAPAC [Concomitant]

REACTIONS (3)
  - BLOOD PRESSURE DECREASED [None]
  - DIARRHOEA [None]
  - TREMOR [None]
